FAERS Safety Report 16037080 (Version 1)
Quarter: 2019Q1

REPORT INFORMATION
  Report Type: Spontaneous
  Country: US (occurrence: US)
  Receive Date: 20190305
  Receipt Date: 20190305
  Transmission Date: 20190418
  Serious: No
  Sender: FDA-Public Use
  Company Number: US-IMPAX LABORATORIES, LLC-2018-IPXL-03212

PATIENT
  Age: 73 Year
  Sex: Male
  Weight: 70 kg

DRUGS (6)
  1. RYTARY [Suspect]
     Active Substance: CARBIDOPA\LEVODOPA
     Indication: PARKINSON^S DISEASE
     Dosage: 61.25/245 MG, THREE CAPSULES, THREE TIMES DAILY
     Route: 048
     Dates: start: 20180919, end: 20181002
  2. MYRBETRIQ [Concomitant]
     Active Substance: MIRABEGRON
     Indication: NOCTURIA
     Dosage: 50 MG, QD
     Route: 048
  3. SERTRALINE [Concomitant]
     Active Substance: SERTRALINE HYDROCHLORIDE
     Indication: ANXIETY
     Dosage: 50 MG, QD
     Route: 048
  4. KEPPRA [Concomitant]
     Active Substance: LEVETIRACETAM
     Indication: SEIZURE
     Dosage: 500 MG, TWO TIMES DAILY
     Route: 048
     Dates: end: 201802
  5. CLONAZEPAM. [Concomitant]
     Active Substance: CLONAZEPAM
     Indication: PRODUCT USED FOR UNKNOWN INDICATION
     Dosage: 0.5 MG, 2 PILLS, AT BEDTIME
     Route: 048
  6. LYRICA [Concomitant]
     Active Substance: PREGABALIN
     Indication: RESTLESS LEGS SYNDROME
     Dosage: 100 MG, QD, AT BED TIME
     Route: 048

REACTIONS (6)
  - Salivary hypersecretion [Recovering/Resolving]
  - Drug effect variable [Unknown]
  - Freezing phenomenon [Not Recovered/Not Resolved]
  - Hypogeusia [Recovering/Resolving]
  - Fatigue [Recovered/Resolved]
  - Labelled drug-food interaction medication error [Unknown]

NARRATIVE: CASE EVENT DATE: 201809
